FAERS Safety Report 15863387 (Version 2)
Quarter: 2019Q1

REPORT INFORMATION
  Report Type: Spontaneous
  Country: FR (occurrence: FR)
  Receive Date: 20190124
  Receipt Date: 20190130
  Transmission Date: 20190417
  Serious: Yes (Other)
  Sender: FDA-Public Use
  Company Number: FR-MYLANLABS-2019M1005751

PATIENT
  Age: 44 Year
  Sex: Female

DRUGS (4)
  1. INFLIXIMAB [Suspect]
     Active Substance: INFLIXIMAB
     Dosage: 350 MILLIGRAM
     Dates: start: 201710
  2. AZATHIOPRINE. [Suspect]
     Active Substance: AZATHIOPRINE
     Indication: COLITIS ULCERATIVE
     Dosage: 150 MG, DAILY
     Dates: start: 201606
  3. INFLIXIMAB [Suspect]
     Active Substance: INFLIXIMAB
     Dosage: 350 MILLIGRAM
     Dates: start: 201610
  4. INFLIXIMAB [Suspect]
     Active Substance: INFLIXIMAB
     Indication: COLITIS ULCERATIVE
     Dosage: 700 MG, EVERY 6 WEEKS
     Dates: start: 201606

REACTIONS (2)
  - Neutropenia [Recovered/Resolved]
  - Sarcoidosis [Recovered/Resolved]

NARRATIVE: CASE EVENT DATE: 201707
